FAERS Safety Report 8853130 (Version 3)
Quarter: 2012Q4

REPORT INFORMATION
  Report Type: 
  Country: JP (occurrence: JP)
  Receive Date: 20121023
  Receipt Date: 20121209
  Transmission Date: 20130627
  Serious: Yes (Other)
  Sender: FDA-Public Use
  Company Number: JP-009507513-1210JPN006035

PATIENT
  Age: 55 Year
  Sex: Male

DRUGS (19)
  1. ACYCLOVIR [Concomitant]
  2. FILGRASTIM [Concomitant]
  3. EMEND [Suspect]
     Indication: PROPHYLAXIS OF NAUSEA AND VOMITING
     Dosage: 125mg, daily dose
     Route: 048
  4. EMEND [Suspect]
     Dosage: 80 mg, daily dose
     Route: 048
  5. EMEND [Suspect]
     Dosage: 125mg, daily dose
     Route: 048
  6. EMEND [Suspect]
     Dosage: 125mg, daily dose
     Route: 048
  7. EMEND [Suspect]
     Dosage: 125mg, daily dose
     Route: 048
  8. BENDAMUSTINE [Suspect]
     Indication: LYMPHOMA
     Dosage: 120 mg/m2, qd
     Route: 042
  9. BENDAMUSTINE [Suspect]
     Dosage: 90 mg/m2, qd
     Route: 042
  10. BENDAMUSTINE [Suspect]
     Dosage: 90 mg/m2, qd
     Route: 042
  11. BENDAMUSTINE [Suspect]
     Dosage: 90 mg/m2, qd
     Route: 042
  12. FLUDARABINE PHOSPHATE [Suspect]
     Indication: LYMPHOMA
     Route: 042
  13. RITUXIMAB [Suspect]
     Indication: LYMPHOMA
     Route: 042
  14. AZASETRON HYDROCHLORIDE [Concomitant]
     Indication: PROPHYLAXIS OF NAUSEA AND VOMITING
  15. DEXAMETHASONE SODIUM PHOSPHATE [Concomitant]
     Indication: PROPHYLAXIS OF NAUSEA AND VOMITING
  16. DEXAMETHASONE [Concomitant]
     Indication: PROPHYLAXIS OF NAUSEA AND VOMITING
     Route: 048
  17. REBAMIPIDE [Concomitant]
  18. ALLOPURINOL [Concomitant]
  19. SULFAMETHOXAZOLE (+) TRIMETHOPRIM [Concomitant]

REACTIONS (9)
  - White blood cell count decreased [Recovered/Resolved]
  - Malaise [Recovered/Resolved]
  - Erythema [Recovered/Resolved]
  - Insomnia [Recovered/Resolved]
  - Decreased appetite [Recovered/Resolved]
  - Hypogeusia [Recovered/Resolved]
  - Platelet count decreased [Recovered/Resolved]
  - C-reactive protein increased [Recovered/Resolved]
  - Peripheral sensory neuropathy [Recovered/Resolved]
